FAERS Safety Report 9613590 (Version 1)
Quarter: 2013Q4

REPORT INFORMATION
  Report Type: Spontaneous
  Country: FR (occurrence: FR)
  Receive Date: 20131010
  Receipt Date: 20131010
  Transmission Date: 20140711
  Serious: Yes (Hospitalization)
  Sender: FDA-Public Use
  Company Number: FR-PFIZER INC-2013285787

PATIENT
  Age: 20 Year
  Sex: Female

DRUGS (2)
  1. SOLU-MEDROL [Suspect]
     Indication: COLITIS
     Dosage: 40 MG, 2X/DAY
     Route: 040
     Dates: start: 201306, end: 20130710
  2. PENTASA [Concomitant]
     Dosage: UNK

REACTIONS (2)
  - Injection site reaction [Recovered/Resolved]
  - Thrombophlebitis superficial [Recovered/Resolved]
